FAERS Safety Report 4359450-4 (Version None)
Quarter: 2004Q2

REPORT INFORMATION
  Report Type: 
  Country: None (occurrence: None)
  Receive Date: 20040511
  Receipt Date: 20040413
  Transmission Date: 20050107
  Serious: Yes (Other)
  Sender: FDA-Public Use
  Company Number: A-CH2004-05659

PATIENT
  Age: 23 Year
  Sex: Female
  Weight: 54 kg

DRUGS (7)
  1. TRACLEER [Suspect]
     Indication: PULMONARY HYPERTENSION
     Dosage: SEE IMAGE
     Route: 048
     Dates: start: 20040226, end: 20040324
  2. TRACLEER [Suspect]
     Indication: PULMONARY HYPERTENSION
     Dosage: SEE IMAGE
     Route: 048
     Dates: start: 20040325, end: 20040330
  3. FLOLAN [Concomitant]
  4. BUMETANIDE [Concomitant]
  5. SPIRONOLACTONE [Concomitant]
  6. SOTALOL HCL [Concomitant]
  7. PHENPROCOUMON (PHENPROCOUMON) [Concomitant]

REACTIONS (8)
  - ANOREXIA [None]
  - ARTHRALGIA [None]
  - COUGH [None]
  - DYSPNOEA [None]
  - FLUID RETENTION [None]
  - INSOMNIA [None]
  - OEDEMA PERIPHERAL [None]
  - WEIGHT INCREASED [None]
